FAERS Safety Report 4835948-7 (Version None)
Quarter: 2005Q4

REPORT INFORMATION
  Report Type: 
  Country: None (occurrence: None)
  Receive Date: 20051123
  Receipt Date: 20051116
  Transmission Date: 20060501
  Serious: Yes (Death)
  Sender: FDA-Public Use
  Company Number: JP-SANOFI-SYNTHELABO-A01200508037

PATIENT
  Sex: Male

DRUGS (4)
  1. OXALIPLATIN [Suspect]
     Indication: LARGE INTESTINE CARCINOMA
     Route: 042
     Dates: start: 20051012, end: 20051012
  2. ISOVORIN [Suspect]
     Route: 040
     Dates: start: 20051012, end: 20051012
  3. ISOVORIN [Suspect]
     Route: 042
     Dates: start: 20051012, end: 20051013
  4. FLUOROURACIL [Suspect]
     Route: 042
     Dates: start: 20051012, end: 20051013

REACTIONS (2)
  - ARRHYTHMIA [None]
  - RESPIRATORY ARREST [None]
